FAERS Safety Report 8528978 (Version 2)
Quarter: 2018Q4

REPORT INFORMATION
  Report Type: Report from Study
  Country: JP (occurrence: JP)
  Receive Date: 20120425
  Receipt Date: 20181025
  Transmission Date: 20190205
  Serious: Yes (Hospitalization)
  Sender: FDA-Public Use
  Company Number: PHHY2012JP032113

PATIENT
  Age: 83 Year
  Sex: Female

DRUGS (6)
  1. EXELON PATCH [Suspect]
     Active Substance: RIVASTIGMINE
     Indication: DEMENTIA ALZHEIMER^S TYPE
     Dosage: 4.5 MG, (PATCH 5CM2) QD
     Route: 062
     Dates: start: 20111126, end: 20111223
  2. EXELON PATCH [Suspect]
     Active Substance: RIVASTIGMINE
     Dosage: 18 MG, (10 CM2)QD
     Route: 062
     Dates: start: 20120218, end: 20120228
  3. EXELON PATCH [Suspect]
     Active Substance: RIVASTIGMINE
     Dosage: 9 MG, ((PATCH 10CM2)) QD
     Route: 062
     Dates: start: 20111224, end: 20120120
  4. EXELON PATCH [Suspect]
     Active Substance: RIVASTIGMINE
     Dosage: 13.5 MG, (PATCH 15CM2) QD
     Route: 062
     Dates: start: 20120121, end: 20120217
  5. REMINYL [Concomitant]
     Active Substance: GALANTAMINE
     Indication: DEMENTIA ALZHEIMER^S TYPE
     Dosage: 16 MG, UNK
     Route: 048
     Dates: start: 20111125
  6. EXELON PATCH [Suspect]
     Active Substance: RIVASTIGMINE
     Dosage: 18 MG (10 CM2), QD
     Route: 062
     Dates: start: 20120317, end: 20120324

REACTIONS (7)
  - Neuropsychiatric symptoms [Recovering/Resolving]
  - Balance disorder [Unknown]
  - Anal incontinence [Unknown]
  - Somnolence [Unknown]
  - Urinary incontinence [Unknown]
  - Listless [Recovering/Resolving]
  - Dementia [Recovering/Resolving]

NARRATIVE: CASE EVENT DATE: 20120225
